FAERS Safety Report 17162625 (Version 1)
Quarter: 2019Q4

REPORT INFORMATION
  Report Type: Spontaneous
  Country: US (occurrence: US)
  Receive Date: 20191216
  Receipt Date: 20191216
  Transmission Date: 20200122
  Serious: No
  Sender: FDA-Public Use
  Company Number: None

PATIENT
  Age: 38 Year
  Sex: Female

DRUGS (6)
  1. FOLIC ACID TAB 1000 MCG [Concomitant]
     Dates: start: 20190923
  2. FOLIC ACID TAB 1MG [Concomitant]
     Dates: start: 20191211
  3. BACLOFEN TAB 20MG [Concomitant]
     Dates: start: 20190923
  4. FAMOTIDINE TAB 20 MG [Concomitant]
     Dates: start: 20191211
  5. H.P. ACTHAR [Suspect]
     Active Substance: CORTICOTROPIN
     Indication: PRODUCT USED FOR UNKNOWN INDICATION
     Dosage: ?          OTHER FREQUENCY:EVERY THREE DAYS;?
     Route: 058
     Dates: start: 20191213
  6. TRAMADOL HCL TAB 50 MG [Concomitant]
     Dates: start: 20191211

REACTIONS (3)
  - Mood swings [None]
  - Insomnia [None]
  - Night sweats [None]

NARRATIVE: CASE EVENT DATE: 20191213
